FAERS Safety Report 10336504 (Version 3)
Quarter: 2015Q1

REPORT INFORMATION
  Report Type: Spontaneous
  Country: US (occurrence: US)
  Receive Date: 20140723
  Receipt Date: 20150119
  Transmission Date: 20150720
  Serious: No
  Sender: FDA-Public Use
  Company Number: US-UNITED THERAPEUTICS-UTC-047177

PATIENT
  Age: 43 Year
  Sex: Female
  Weight: 88.44 kg

DRUGS (1)
  1. REMODULIN [Suspect]
     Active Substance: TREPROSTINIL
     Indication: SARCOIDOSIS
     Dosage: 0.03875 ?G/KG/MIN, CONTINUING
     Route: 058
     Dates: start: 20140331

REACTIONS (6)
  - Infusion site infection [Unknown]
  - Infusion site erythema [Unknown]
  - Catheter site discharge [Unknown]
  - Diarrhoea [Unknown]
  - Infusion site pain [Unknown]
  - Asthenia [Unknown]

NARRATIVE: CASE EVENT DATE: 20140608
